FAERS Safety Report 25935852 (Version 1)
Quarter: 2025Q4

REPORT INFORMATION
  Report Type: Spontaneous
  Country: BR (occurrence: BR)
  Receive Date: 20251017
  Receipt Date: 20251017
  Transmission Date: 20260118
  Serious: Yes (Disabling, Other)
  Sender: NOVO NORDISK
  Company Number: BR-NOVOPROD-1538009

PATIENT
  Age: 73 Year
  Sex: Male

DRUGS (1)
  1. NOVOLIN N [Suspect]
     Active Substance: INSULIN HUMAN
     Indication: Diabetes mellitus
     Dosage: 16,BID (UNIT OF MEASUREMENT NOT REPORTED)

REACTIONS (5)
  - Hydrocephalus [Not Recovered/Not Resolved]
  - Bedridden [Unknown]
  - Injury [Unknown]
  - Fall [Unknown]
  - Blood pressure abnormal [Not Recovered/Not Resolved]
